FAERS Safety Report 14220819 (Version 1)
Quarter: 2017Q4

REPORT INFORMATION
  Report Type: Spontaneous
  Country: US (occurrence: US)
  Receive Date: 20171123
  Receipt Date: 20171123
  Transmission Date: 20180321
  Serious: No
  Sender: FDA-Public Use
  Company Number: US-JNJFOC-20151024233

PATIENT
  Age: 7 Year
  Sex: Male

DRUGS (4)
  1. RISPERDAL [Suspect]
     Active Substance: RISPERIDONE
     Indication: BIPOLAR DISORDER
     Dosage: 5 MG AND 1 MG
     Route: 048
     Dates: start: 19971217, end: 20050115
  2. RISPERDAL [Suspect]
     Active Substance: RISPERIDONE
     Indication: BIPOLAR DISORDER
     Route: 048
     Dates: start: 2003, end: 2008
  3. RISPERDAL [Suspect]
     Active Substance: RISPERIDONE
     Indication: ATTENTION DEFICIT/HYPERACTIVITY DISORDER
     Dosage: 5 MG AND 1 MG
     Route: 048
     Dates: start: 19971217, end: 20050115
  4. RISPERDAL [Suspect]
     Active Substance: RISPERIDONE
     Indication: ATTENTION DEFICIT/HYPERACTIVITY DISORDER
     Route: 048
     Dates: start: 2003, end: 2008

REACTIONS (8)
  - Enuresis [Unknown]
  - Drug ineffective [Unknown]
  - Abnormal weight gain [Unknown]
  - Dystonia [Unknown]
  - Muscle spasms [Recovered/Resolved]
  - Gynaecomastia [Unknown]
  - Galactorrhoea [Unknown]
  - Hyperprolactinaemia [Unknown]

NARRATIVE: CASE EVENT DATE: 19990212
